FAERS Safety Report 17062384 (Version 2)
Quarter: 2019Q4

REPORT INFORMATION
  Report Type: Spontaneous
  Country: DE (occurrence: DE)
  Receive Date: 20191122
  Receipt Date: 20191211
  Transmission Date: 20200122
  Serious: Yes (Hospitalization)
  Sender: FDA-Public Use
  Company Number: DE-BIOGEN-2019BI00808549

PATIENT
  Sex: Female

DRUGS (1)
  1. TECFIDERA [Suspect]
     Active Substance: DIMETHYL FUMARATE
     Indication: EXPOSURE VIA PARTNER
     Route: 065
     Dates: start: 20191001

REACTIONS (2)
  - Foetal growth restriction [Not Recovered/Not Resolved]
  - Paternal exposure during pregnancy [Not Recovered/Not Resolved]
